FAERS Safety Report 22309022 (Version 2)
Quarter: 2023Q2

REPORT INFORMATION
  Report Type: Spontaneous
  Country: US (occurrence: US)
  Receive Date: 20230511
  Receipt Date: 20230530
  Transmission Date: 20230722
  Serious: No
  Sender: FDA-Public Use
  Company Number: US-IDORSIA-004949-2023-US

PATIENT
  Age: 67 Year
  Sex: Male

DRUGS (8)
  1. QUVIVIQ [Suspect]
     Active Substance: DARIDOREXANT
     Indication: Insomnia
     Dosage: 25 MG, QD
     Route: 048
     Dates: start: 20230203, end: 20230303
  2. QUVIVIQ [Suspect]
     Active Substance: DARIDOREXANT
     Dosage: 50 MG, QD
     Route: 048
     Dates: start: 20230303
  3. QUVIVIQ [Suspect]
     Active Substance: DARIDOREXANT
     Dosage: 50 MG, QD
     Route: 048
  4. TRAZODONE [Concomitant]
     Active Substance: TRAZODONE HYDROCHLORIDE
     Dosage: 150 MG
  5. LANSOPRAZOLE [Concomitant]
     Active Substance: LANSOPRAZOLE
     Indication: Gastrooesophageal reflux disease
  6. LEVOTHYROXINE SODIUM [Concomitant]
     Active Substance: LEVOTHYROXINE SODIUM
     Indication: Thyroid disorder
  7. LOSARTAN [Concomitant]
     Active Substance: LOSARTAN
     Indication: Hypertension
  8. AMLODIPINE [Concomitant]
     Active Substance: AMLODIPINE BESYLATE
     Indication: Hypertension

REACTIONS (4)
  - Shoulder operation [Recovered/Resolved]
  - Drug ineffective [Recovered/Resolved]
  - Therapeutic product effect incomplete [Not Recovered/Not Resolved]
  - Intentional dose omission [Recovered/Resolved]

NARRATIVE: CASE EVENT DATE: 20230203
